FAERS Safety Report 6059147-9 (Version None)
Quarter: 2009Q1

REPORT INFORMATION
  Report Type: 
  Country: None (occurrence: None)
  Receive Date: 20090127
  Receipt Date: 20090127
  Transmission Date: 20090719
  Serious: Yes (Other)
  Sender: FDA-Public Use
  Company Number: None

PATIENT
  Age: 38 Year
  Sex: Female
  Weight: 72.5755 kg

DRUGS (1)
  1. CYMBALTA [Suspect]
     Indication: FIBROMYALGIA
     Dosage: 30MG 1X DAILY PO (THERAPY DATES: MID NOV-LATE NOV 2008)
     Route: 048

REACTIONS (2)
  - ANGER [None]
  - VIOLENCE-RELATED SYMPTOM [None]
